FAERS Safety Report 10580825 (Version 1)
Quarter: 2014Q4

REPORT INFORMATION
  Report Type: Spontaneous
  Country: PR (occurrence: PR)
  Receive Date: 20141113
  Receipt Date: 20141113
  Transmission Date: 20150529
  Serious: No
  Sender: FDA-Public Use
  Company Number: PR-BIOGENIDEC-2014BI117412

PATIENT
  Sex: Female

DRUGS (1)
  1. TECFIDERA [Suspect]
     Active Substance: DIMETHYL FUMARATE
     Indication: MULTIPLE SCLEROSIS
     Dates: start: 20140929

REACTIONS (7)
  - Alopecia [Unknown]
  - Dry skin [Unknown]
  - Muscle spasms [Unknown]
  - Depression [Unknown]
  - Decreased appetite [Unknown]
  - Gait disturbance [Unknown]
  - Abdominal pain upper [Unknown]
